FAERS Safety Report 18239401 (Version 1)
Quarter: 2020Q3

REPORT INFORMATION
  Report Type: Spontaneous
  Country: CN (occurrence: CN)
  Receive Date: 20200907
  Receipt Date: 20200907
  Transmission Date: 20201103
  Serious: Yes (Death, Other)
  Sender: FDA-Public Use
  Company Number: CN-ROCHE-2670402

PATIENT
  Age: 49 Year
  Sex: Male
  Weight: 67 kg

DRUGS (6)
  1. PACLITAXEL ALBUMIN [Concomitant]
     Active Substance: PACLITAXEL
  2. HERCEPTIN [Suspect]
     Active Substance: TRASTUZUMAB
     Indication: ADENOCARCINOMA GASTRIC
     Dosage: ON DAY1
     Route: 041
     Dates: start: 20181204
  3. NIVOLUMAB [Concomitant]
     Active Substance: NIVOLUMAB
  4. PYROTINIB [Concomitant]
     Active Substance: PYROTINIB
  5. OXALIPLATIN. [Concomitant]
     Active Substance: OXALIPLATIN
  6. TEGAFUR GIMERACIL AND OTERACIL POTASSIUM [Concomitant]
     Active Substance: GIMERACIL\OTERACIL\TEGAFUR

REACTIONS (10)
  - Hepatic steatosis [Unknown]
  - Pelvic fluid collection [Unknown]
  - Pleural effusion [Unknown]
  - Lung neoplasm [Unknown]
  - Intra-abdominal fluid collection [Unknown]
  - Pericardial effusion [Unknown]
  - Hepatic cyst [Unknown]
  - Hepatic function abnormal [Not Recovered/Not Resolved]
  - Death [Fatal]
  - Upper gastrointestinal haemorrhage [Unknown]

NARRATIVE: CASE EVENT DATE: 2020
